FAERS Safety Report 12631596 (Version 2)
Quarter: 2016Q3

REPORT INFORMATION
  Report Type: Spontaneous
  Country: US (occurrence: US)
  Receive Date: 20160808
  Receipt Date: 20160808
  Transmission Date: 20161109
  Serious: No
  Sender: FDA-Public Use
  Company Number: US-BEH-2015054847

PATIENT
  Sex: Male
  Weight: 33 kg

DRUGS (5)
  1. LIDOCAINE. [Concomitant]
     Active Substance: LIDOCAINE
  2. HIZENTRA [Suspect]
     Active Substance: HUMAN IMMUNOGLOBULIN G
     Indication: CONGENITAL HYPOGAMMAGLOBULINAEMIA
     Dosage: 1 GM 5 ML VIAL
     Route: 058
  3. HIZENTRA [Suspect]
     Active Substance: HUMAN IMMUNOGLOBULIN G
     Dosage: 4 GM 20 ML VIAL
     Route: 058
  4. EPIPEN [Concomitant]
     Active Substance: EPINEPHRINE
     Indication: ANAPHYLACTIC REACTION
  5. DIPHENHYDRAMINE. [Concomitant]
     Active Substance: DIPHENHYDRAMINE
     Indication: ANAPHYLACTIC REACTION

REACTIONS (1)
  - Infusion site scab [Unknown]
